FAERS Safety Report 4322236-0 (Version None)
Quarter: 2004Q1

REPORT INFORMATION
  Report Type: 
  Country: None (occurrence: None)
  Receive Date: 20040323
  Receipt Date: 20040310
  Transmission Date: 20041129
  Serious: Yes (Other)
  Sender: FDA-Public Use
  Company Number: 2004016477

PATIENT
  Age: 30 Year
  Sex: Female

DRUGS (6)
  1. DIPHENHYDRAMINE HCL [Suspect]
     Dosage: 25 MG, Q 4.6 HOURS), ORAL
     Route: 048
  2. PEPCID AC [Suspect]
     Indication: GASTROOESOPHAGEAL REFLUX DISEASE
     Dosage: ORAL
     Route: 048
     Dates: start: 20040221, end: 20040224
  3. NESTABS (ASCORBIC ACID, TOCOPHEROL, FOLIC ACID, RETINOL, VITAM IN D NO [Suspect]
     Dosage: 1 TABS QD, ORAL
     Route: 048
     Dates: start: 20040221, end: 20040224
  4. HEPARIN-FRACTION, SODIUM SALT [Concomitant]
  5. FOLIC ACID [Concomitant]
  6. PYRIDOXINE [Concomitant]

REACTIONS (10)
  - CONDITION AGGRAVATED [None]
  - DIFFICULTY IN WALKING [None]
  - ERYTHEMA [None]
  - EYE SWELLING [None]
  - HYPERSENSITIVITY [None]
  - OEDEMA PERIPHERAL [None]
  - PRURITUS [None]
  - RASH [None]
  - SWELLING FACE [None]
  - URTICARIA [None]
